FAERS Safety Report 7264750-4 (Version None)
Quarter: 2011Q1

REPORT INFORMATION
  Report Type: 
  Country: None (occurrence: None)
  Receive Date: 20110131
  Receipt Date: 20110118
  Transmission Date: 20110831
  Serious: Yes (Hospitalization, Other)
  Sender: FDA-Public Use
  Company Number: JP-CELGENEUS-087-21880-10111556

PATIENT
  Sex: Female
  Weight: 39 kg

DRUGS (19)
  1. TAKEPRON [Concomitant]
     Indication: PROPHYLAXIS
     Route: 048
     Dates: start: 20100910, end: 20101003
  2. HEPARIN SODIUM [Concomitant]
     Indication: PROPHYLAXIS
     Dosage: 10000 UNIT
     Route: 041
     Dates: start: 20100910, end: 20100916
  3. BAKTAR [Concomitant]
     Indication: PROPHYLAXIS
     Route: 048
     Dates: start: 20100910
  4. SIGMART [Concomitant]
     Indication: ANGINA PECTORIS
     Route: 048
     Dates: start: 20100910
  5. LENADEX [Suspect]
     Route: 048
     Dates: start: 20101020, end: 20101023
  6. LENADEX [Suspect]
     Route: 048
     Dates: start: 20101117
  7. ALOSENN [Concomitant]
     Indication: CONSTIPATION
     Route: 048
     Dates: start: 20100910
  8. ARTIST [Concomitant]
     Indication: ANGINA PECTORIS
     Route: 048
     Dates: start: 20100910
  9. REVLIMID [Suspect]
     Indication: MULTIPLE MYELOMA
     Route: 048
     Dates: start: 20100910, end: 20100930
  10. REVLIMID [Suspect]
     Route: 048
     Dates: start: 20101117, end: 20110104
  11. WARFARIN [Concomitant]
     Route: 048
     Dates: start: 20100917, end: 20100920
  12. CONIEL [Concomitant]
     Indication: HYPERTENSION
     Route: 048
     Dates: start: 20100910, end: 20101019
  13. LENADEX [Suspect]
     Indication: MULTIPLE MYELOMA
     Route: 048
     Dates: start: 20100926, end: 20100929
  14. DEXART [Concomitant]
     Indication: MULTIPLE MYELOMA
     Route: 041
     Dates: start: 20100910, end: 20100921
  15. TAKEPRON [Concomitant]
     Route: 065
     Dates: start: 20101020
  16. WARFARIN [Concomitant]
     Route: 048
     Dates: start: 20100921, end: 20101004
  17. BUFFERIN [Concomitant]
     Indication: ANGINA PECTORIS
     Route: 048
     Dates: start: 20100910
  18. REVLIMID [Suspect]
     Route: 048
     Dates: start: 20101020, end: 20101030
  19. WARFARIN [Concomitant]
     Indication: PROPHYLAXIS
     Route: 048
     Dates: start: 20100913, end: 20100916

REACTIONS (8)
  - PLATELET COUNT DECREASED [None]
  - PNEUMONIA [None]
  - UPPER RESPIRATORY TRACT INFLAMMATION [None]
  - COUGH [None]
  - THROMBOCYTOPENIA [None]
  - NEUTROPENIA [None]
  - PROTHROMBIN TIME PROLONGED [None]
  - UPPER GASTROINTESTINAL HAEMORRHAGE [None]
